FAERS Safety Report 5787089-2 (Version None)
Quarter: 2008Q2

REPORT INFORMATION
  Report Type: 
  Country: None (occurrence: None)
  Receive Date: 20080623
  Receipt Date: 20080623
  Transmission Date: 20081010
  Serious: Yes (Other)
  Sender: FDA-Public Use
  Company Number: None

PATIENT
  Sex: Male

DRUGS (1)
  1. SIROLIMUS [Suspect]
     Dates: start: 20080516, end: 20080610

REACTIONS (2)
  - PRURITUS [None]
  - RASH [None]
